FAERS Safety Report 6216680-4 (Version None)
Quarter: 2009Q2

REPORT INFORMATION
  Report Type: 
  Country: None (occurrence: None)
  Receive Date: 20090604
  Receipt Date: 20090604
  Transmission Date: 20091009
  Serious: Yes (Other)
  Sender: FDA-Public Use
  Company Number: None

PATIENT
  Age: 10 Year
  Sex: Male
  Weight: 52.1637 kg

DRUGS (1)
  1. RISPERIDONE [Suspect]
     Indication: ATTENTION DEFICIT/HYPERACTIVITY DISORDER
     Dosage: 1 MG P.O. QHS
     Route: 048

REACTIONS (3)
  - AGITATION [None]
  - ANGER [None]
  - PRODUCT SUBSTITUTION ISSUE [None]
